FAERS Safety Report 13608297 (Version 1)
Quarter: 2017Q2

REPORT INFORMATION
  Report Type: Spontaneous
  Country: US (occurrence: US)
  Receive Date: 20170602
  Receipt Date: 20170602
  Transmission Date: 20170830
  Serious: No
  Sender: FDA-Public Use
  Company Number: US-PERRIGO-17US001663

PATIENT
  Age: 82 Year
  Sex: Female
  Weight: 52.15 kg

DRUGS (2)
  1. PERMETHRIN. [Suspect]
     Active Substance: PERMETHRIN
     Indication: LICE INFESTATION
     Dosage: 1 SMALL APPLICATION, SINGLE
     Route: 061
     Dates: start: 20170208, end: 20170208
  2. PERMETHRIN. [Suspect]
     Active Substance: PERMETHRIN
     Indication: FLEA INFESTATION
     Dosage: 1 MODERATE APPLICATION, SINGLE
     Route: 061
     Dates: start: 20170214, end: 20170214

REACTIONS (2)
  - Off label use [Recovered/Resolved]
  - Drug administered at inappropriate site [Recovered/Resolved]

NARRATIVE: CASE EVENT DATE: 20170208
